FAERS Safety Report 25849508 (Version 2)
Quarter: 2025Q3

REPORT INFORMATION
  Report Type: Spontaneous
  Country: JP (occurrence: JP)
  Receive Date: 20250926
  Receipt Date: 20250930
  Transmission Date: 20251020
  Serious: Yes (Life-Threatening)
  Sender: ABBVIE
  Company Number: JP-ABBOTT-13P-087-1053111-00

PATIENT

DRUGS (7)
  1. SEVOFLURANE [Suspect]
     Active Substance: SEVOFLURANE
     Indication: Maternal exposure timing unspecified
     Route: 064
     Dates: start: 20091017, end: 20091017
  2. REMIFENTANIL [Suspect]
     Active Substance: REMIFENTANIL
     Indication: Maternal exposure timing unspecified
     Route: 064
     Dates: start: 20091017, end: 20091017
  3. FENTANYL [Concomitant]
     Active Substance: FENTANYL
     Indication: Maternal exposure timing unspecified
     Route: 064
     Dates: start: 20091017, end: 20091017
  4. THIOPENTAL SODIUM [Concomitant]
     Active Substance: THIOPENTAL SODIUM
     Indication: Maternal exposure timing unspecified
     Route: 064
     Dates: start: 20091017, end: 20091017
  5. ROPIVACAINE HYDROCHLORIDE [Concomitant]
     Active Substance: ROPIVACAINE HYDROCHLORIDE
     Indication: Maternal exposure timing unspecified
     Route: 064
     Dates: start: 20091017, end: 20091017
  6. ROPIVACAINE HYDROCHLORIDE [Concomitant]
     Active Substance: ROPIVACAINE HYDROCHLORIDE
     Indication: Maternal exposure timing unspecified
     Route: 064
     Dates: start: 20091017, end: 20091017
  7. ROCURONIUM BROMIDE [Concomitant]
     Active Substance: ROCURONIUM BROMIDE
     Indication: Maternal exposure timing unspecified
     Route: 064
     Dates: start: 20091017, end: 20091017

REACTIONS (3)
  - Foetal heart rate deceleration abnormality [Recovered/Resolved]
  - Premature baby [Unknown]
  - Foetal exposure during pregnancy [Unknown]

NARRATIVE: CASE EVENT DATE: 20091017
